FAERS Safety Report 10420613 (Version 1)
Quarter: 2014Q3

REPORT INFORMATION
  Report Type: Spontaneous
  Country: US (occurrence: None)
  Receive Date: 20140828
  Receipt Date: 20140828
  Transmission Date: 20150326
  Serious: No
  Sender: FDA-Public Use
  Company Number: None

PATIENT
  Age: 54 Year
  Sex: Female
  Weight: 53.98 kg

DRUGS (2)
  1. PROLIA [Suspect]
     Active Substance: DENOSUMAB
     Indication: OSTEOPOROSIS
     Dosage: 1 SHOT, EVERY SIX MONTHS, IN THE ARM
     Dates: start: 20140424
  2. PROLIA [Suspect]
     Active Substance: DENOSUMAB
     Indication: OSTEOPENIA
     Dosage: 1 SHOT, EVERY SIX MONTHS, IN THE ARM
     Dates: start: 20140424

REACTIONS (2)
  - Ear pain [None]
  - Temporomandibular joint syndrome [None]
